FAERS Safety Report 8889131 (Version 2)
Quarter: 2012Q4

REPORT INFORMATION
  Report Type: 
  Country: JP (occurrence: JP)
  Receive Date: 20121106
  Receipt Date: 20121130
  Transmission Date: 20130627
  Serious: Yes (Other)
  Sender: FDA-Public Use
  Company Number: JP-PFIZER INC-2012272176

PATIENT
  Age: 9 Year
  Sex: Male

DRUGS (2)
  1. METHYLPREDNISOLONE [Suspect]
     Indication: ACUTE DISSEMINATED ENCEPHALOMYELITIS
  2. IMMUNOGLOBULIN [Concomitant]

REACTIONS (1)
  - Leukoencephalopathy [Unknown]
